FAERS Safety Report 13710487 (Version 2)
Quarter: 2017Q3

REPORT INFORMATION
  Report Type: Spontaneous
  Country: BR (occurrence: BR)
  Receive Date: 20170703
  Receipt Date: 20170824
  Transmission Date: 20171127
  Serious: Yes (Other)
  Sender: FDA-Public Use
  Company Number: BR-JNJFOC-20170625246

PATIENT
  Age: 66 Year
  Sex: Female

DRUGS (1)
  1. HALDOL [Suspect]
     Active Substance: HALOPERIDOL
     Indication: PRODUCT USED FOR UNKNOWN INDICATION
     Route: 048

REACTIONS (6)
  - Unresponsive to stimuli [Unknown]
  - Disturbance in social behaviour [Unknown]
  - Suicidal ideation [Unknown]
  - Product availability issue [Unknown]
  - Drug dose omission [Unknown]
  - Hallucination [Unknown]

NARRATIVE: CASE EVENT DATE: 201706
